FAERS Safety Report 5712988-7 (Version None)
Quarter: 2008Q2

REPORT INFORMATION
  Report Type: 
  Country: None (occurrence: None)
  Receive Date: 20080418
  Receipt Date: 20080408
  Transmission Date: 20081010
  Serious: Yes (Hospitalization)
  Sender: FDA-Public Use
  Company Number: 026415

PATIENT
  Age: 69 Year
  Sex: Male
  Weight: 110.2 kg

DRUGS (12)
  1. METFORMIN HYDROCHLORIDE [Suspect]
     Indication: DIABETES MELLITUS
     Dosage: 1000 MG AM AND 1000 MG PM : 1000MG BREAKFAST, 1500MG DINNER
     Dates: start: 20070101, end: 20070724
  2. METFORMIN HYDROCHLORIDE [Suspect]
     Indication: DIABETES MELLITUS
     Dosage: 1000 MG AM AND 1000 MG PM : 1000MG BREAKFAST, 1500MG DINNER
     Dates: start: 20070725, end: 20080301
  3. GLYBURIDE [Concomitant]
  4. GABAPENTIN [Concomitant]
  5. CYMBALTA [Concomitant]
  6. TRAMADOL HCL [Concomitant]
  7. SIMVASTATIN [Concomitant]
  8. ATACAND [Concomitant]
  9. METOPROLOL TARTRATE [Concomitant]
  10. TRICOR [Concomitant]
  11. LYRICA [Concomitant]
  12. ASPIRIN [Concomitant]

REACTIONS (4)
  - BLOOD GLUCOSE INCREASED [None]
  - BRONCHITIS [None]
  - HEART RATE INCREASED [None]
  - PYREXIA [None]
